FAERS Safety Report 8556161-6 (Version None)
Quarter: 2012Q3

REPORT INFORMATION
  Report Type: 
  Country: None (occurrence: None)
  Receive Date: 20120801
  Receipt Date: 20120705
  Transmission Date: 20120928
  Serious: No
  Sender: FDA-Public Use
  Company Number: US-009507513-1208USA000168

PATIENT

DRUGS (2)
  1. DOXORUBICIN HYDROCHLORIDE [Concomitant]
     Indication: CHEMOTHERAPY
  2. EMEND [Suspect]

REACTIONS (4)
  - INFUSION SITE RASH [None]
  - INFUSION SITE PAIN [None]
  - PAIN IN EXTREMITY [None]
  - INFUSION SITE PRURITUS [None]
